FAERS Safety Report 6812478-4 (Version None)
Quarter: 2010Q3

REPORT INFORMATION
  Report Type: 
  Country: None (occurrence: None)
  Receive Date: 20100701
  Receipt Date: 20100621
  Transmission Date: 20110219
  Serious: Yes (Hospitalization)
  Sender: FDA-Public Use
  Company Number: JP-MYLANLABS-2010S1010882

PATIENT
  Age: 67 Year
  Sex: Male
  Weight: 65 kg

DRUGS (1)
  1. AMIODARONE [Suspect]
     Indication: VENTRICULAR TACHYCARDIA
     Route: 065
     Dates: start: 20030301

REACTIONS (2)
  - HEPATIC CIRRHOSIS [None]
  - PARKINSONISM [None]
